FAERS Safety Report 25059984 (Version 1)
Quarter: 2025Q1

REPORT INFORMATION
  Report Type: Spontaneous
  Country: US (occurrence: US)
  Receive Date: 20250310
  Receipt Date: 20250310
  Transmission Date: 20250408
  Serious: Yes (Other)
  Sender: GALPHARM INTERNATIONAL
  Company Number: US-PERRIGO-25US003010

PATIENT

DRUGS (1)
  1. DAYTIME MULTI-SYMPTOM SEVERE COLD [Suspect]
     Active Substance: ACETAMINOPHEN\DEXTROMETHORPHAN HYDROBROMIDE\GUAIFENESIN\PHENYLEPHRINE HYDROCHLORIDE
     Indication: Product used for unknown indication
     Route: 048

REACTIONS (1)
  - Gastric haemorrhage [Unknown]
